FAERS Safety Report 8414969-1 (Version None)
Quarter: 2012Q2

REPORT INFORMATION
  Report Type: 
  Country: None (occurrence: None)
  Receive Date: 20120530
  Receipt Date: 20120524
  Transmission Date: 20120825
  Serious: Yes (Life-Threatening, Hospitalization)
  Sender: FDA-Public Use
  Company Number: 2012SP028121

PATIENT
  Age: 42 Year
  Sex: Male

DRUGS (1)
  1. SAPHRIS [Suspect]
     Indication: SCHIZOPHRENIA
     Dosage: 10 MG; QD; SL
     Route: 060
     Dates: start: 20120504, end: 20120506

REACTIONS (1)
  - CEREBROVASCULAR ACCIDENT [None]
